FAERS Safety Report 7313804-2 (Version None)
Quarter: 2011Q1

REPORT INFORMATION
  Report Type: 
  Country: None (occurrence: None)
  Receive Date: 20110225
  Receipt Date: 20110218
  Transmission Date: 20110831
  Serious: Yes (Other)
  Sender: FDA-Public Use
  Company Number: JP-PFIZER INC-2011037110

PATIENT
  Age: 94 Year
  Sex: Female

DRUGS (4)
  1. LYRICA [Suspect]
     Indication: NEUROPATHY PERIPHERAL
     Dosage: 75 MG/DAY
     Route: 048
     Dates: start: 20101206, end: 20101229
  2. MAGNESIUM OXIDE [Concomitant]
     Dosage: UNK
     Route: 048
  3. TORASEMIDE [Concomitant]
     Dosage: 8 MG/DAY
     Route: 048
  4. NEUROTROPIN [Concomitant]
     Dosage: UNK
     Route: 048

REACTIONS (4)
  - ASTHENIA [None]
  - HOT FLUSH [None]
  - OEDEMA [None]
  - DYSSTASIA [None]
